FAERS Safety Report 5703050-8 (Version None)
Quarter: 2008Q2

REPORT INFORMATION
  Report Type: 
  Country: None (occurrence: None)
  Receive Date: 20080408
  Receipt Date: 20080326
  Transmission Date: 20081010
  Serious: Yes (Other)
  Sender: FDA-Public Use
  Company Number: 2007-01801

PATIENT
  Age: 48 Year
  Sex: Male
  Weight: 84 kg

DRUGS (7)
  1. VELCADE [Suspect]
     Indication: MULTIPLE MYELOMA
     Dosage: 2.60 MG, INTRAVENOUS, 2.00 MG, INTRAVENOUS
     Route: 042
     Dates: start: 20070129, end: 20070222
  2. DEXAMETHASONE TAB [Suspect]
     Indication: MULTIPLE MYELOMA
     Dosage: 20.00 MG, INTRAVENOUS
     Route: 042
     Dates: start: 20070129, end: 20071107
  3. ROXATIDINE ACETATE HCL [Concomitant]
  4. ALLOPURINOL [Concomitant]
  5. DIFLUCAN [Concomitant]
  6. SULFAMETHOXAZOLE AND TRIMETHOPRIM [Concomitant]
  7. URSO 250 [Concomitant]

REACTIONS (5)
  - CAPILLARY LEAK SYNDROME [None]
  - DYSPNOEA EXERTIONAL [None]
  - LYMPHOCYTE COUNT DECREASED [None]
  - NEUROPATHY PERIPHERAL [None]
  - PLEURAL EFFUSION [None]
